FAERS Safety Report 5087505-8 (Version None)
Quarter: 2006Q3

REPORT INFORMATION
  Report Type: 
  Country: None (occurrence: None)
  Receive Date: 20060822
  Receipt Date: 20060822
  Transmission Date: 20061208
  Serious: Yes (Hospitalization)
  Sender: FDA-Public Use
  Company Number: None

PATIENT
  Age: 67 Year
  Sex: Male
  Weight: 101.6057 kg

DRUGS (11)
  1. LISINOPRIL [Suspect]
     Indication: BLOOD PRESSURE
     Dosage: ONE TAB PO QD
     Route: 048
     Dates: start: 20020601, end: 20060621
  2. LISINOPRIL [Suspect]
     Indication: DIABETES MELLITUS
     Dosage: ONE TAB PO QD
     Route: 048
     Dates: start: 20020601, end: 20060621
  3. FOLIC ACID [Concomitant]
  4. EPOETIN [Concomitant]
  5. ROSIGLITAZONE [Concomitant]
  6. DOXAZOSIN MESYLATE [Concomitant]
  7. MINOXIDIL [Concomitant]
  8. ATENOLOL [Concomitant]
  9. FUROSEMIDE [Concomitant]
  10. GLIPIZIDE [Concomitant]
  11. LISINOPRIL [Concomitant]

REACTIONS (9)
  - ASTHENIA [None]
  - DIABETES MELLITUS INADEQUATE CONTROL [None]
  - HYPERKALAEMIA [None]
  - HYPOGLYCAEMIA [None]
  - LOCALISED OEDEMA [None]
  - MALAISE [None]
  - OEDEMA PERIPHERAL [None]
  - PROTEINURIA [None]
  - RENAL FAILURE ACUTE [None]
